FAERS Safety Report 13062923 (Version 1)
Quarter: 2016Q4

REPORT INFORMATION
  Report Type: Spontaneous
  Country: FR (occurrence: FR)
  Receive Date: 20161227
  Receipt Date: 20161227
  Transmission Date: 20170207
  Serious: Yes (Other)
  Sender: FDA-Public Use
  Company Number: FR-ROCHE-1871632

PATIENT
  Age: 52 Year
  Sex: Female

DRUGS (3)
  1. APRANAX [Suspect]
     Active Substance: NAPROXEN
     Indication: PAIN
     Route: 048
     Dates: start: 20160412, end: 20160416
  2. OPDIVO [Suspect]
     Active Substance: NIVOLUMAB
     Indication: KIDNEY ANGIOMYOLIPOMA
     Route: 042
     Dates: start: 20160216, end: 20160510
  3. ANTALNOX [Suspect]
     Active Substance: NAPROXEN SODIUM
     Indication: PRODUCT USED FOR UNKNOWN INDICATION
     Route: 048
     Dates: start: 20160416, end: 20160426

REACTIONS (2)
  - Photosensitivity reaction [Unknown]
  - Psoriatic arthropathy [Unknown]

NARRATIVE: CASE EVENT DATE: 20160412
